FAERS Safety Report 4452645-0 (Version None)
Quarter: 2004Q3

REPORT INFORMATION
  Report Type: 
  Country: None (occurrence: None)
  Receive Date: 20040813
  Receipt Date: 20040701
  Transmission Date: 20050211
  Serious: No
  Sender: FDA-Public Use
  Company Number: S04-USA-03780-01

PATIENT
  Age: 73 Year
  Sex: Female

DRUGS (13)
  1. NAMENDA [Suspect]
     Indication: COGNITIVE DISORDER
     Dosage: 5 MG BID PO
     Route: 048
     Dates: start: 20040625
  2. NAMENDA [Suspect]
     Indication: COGNITIVE DISORDER
     Dosage: 5 MG QD PO
     Route: 048
     Dates: start: 20040618, end: 20040624
  3. COREG [Concomitant]
  4. ACCUPRIL [Concomitant]
  5. EVISTA [Concomitant]
  6. CELEBREX [Concomitant]
  7. AMBIEN [Concomitant]
  8. LOVASTATIN [Concomitant]
  9. MULTIVITAMIN [Concomitant]
  10. OSCAL (CALCIUM CARBONATE) [Concomitant]
  11. VITAMIN E [Concomitant]
  12. OSTEO BI-FLEX [Concomitant]
  13. ASPIRIN [Concomitant]

REACTIONS (1)
  - RASH PRURITIC [None]
